FAERS Safety Report 13644831 (Version 1)
Quarter: 2017Q2

REPORT INFORMATION
  Report Type: Spontaneous
  Country: US (occurrence: US)
  Receive Date: 20170612
  Receipt Date: 20170612
  Transmission Date: 20170830
  Serious: Yes (Other)
  Sender: FDA-Public Use
  Company Number: US-ROCHE-1099179

PATIENT
  Age: 59 Year
  Sex: Male
  Weight: 86.26 kg

DRUGS (1)
  1. XELODA [Suspect]
     Active Substance: CAPECITABINE
     Indication: COLON CANCER
     Route: 048
     Dates: start: 20120509, end: 20120809

REACTIONS (3)
  - Skin burning sensation [Unknown]
  - Blister [Unknown]
  - Palmar-plantar erythrodysaesthesia syndrome [Recovering/Resolving]

NARRATIVE: CASE EVENT DATE: 20120809
